FAERS Safety Report 5056743-2 (Version None)
Quarter: 2006Q2

REPORT INFORMATION
  Report Type: 
  Country: None (occurrence: None)
  Receive Date: 20060619
  Receipt Date: 20050826
  Transmission Date: 20061013
  Serious: Yes (Other)
  Sender: FDA-Public Use
  Company Number: US-2005-017802

PATIENT
  Age: 79 Year
  Sex: Female

DRUGS (3)
  1. FLUDARA [Suspect]
     Indication: SPLENIC MARGINAL ZONE LYMPHOMA
     Dosage: 4 CYCLES
     Dates: start: 20050401
  2. CYTOXAN [Concomitant]
  3. RITUXIMAB [Concomitant]

REACTIONS (4)
  - BONE MARROW FAILURE [None]
  - FEBRILE NEUTROPENIA [None]
  - PNEUMOCYSTIS JIROVECI PNEUMONIA [None]
  - THROMBOCYTOPENIA [None]
